FAERS Safety Report 5946212-7 (Version None)
Quarter: 2008Q4

REPORT INFORMATION
  Report Type: 
  Country: None (occurrence: None)
  Receive Date: 20081106
  Receipt Date: 20081106
  Transmission Date: 20090506
  Serious: Yes (Hospitalization)
  Sender: FDA-Public Use
  Company Number: None

PATIENT
  Age: 73 Year
  Sex: Female

DRUGS (1)
  1. MONTELUKAST SODIUM [Suspect]

REACTIONS (3)
  - ALLERGIC GRANULOMATOUS ANGIITIS [None]
  - BRONCHOSPASM [None]
  - PNEUMONIA [None]
